FAERS Safety Report 10152374 (Version 3)
Quarter: 2014Q2

REPORT INFORMATION
  Report Type: Spontaneous
  Country: MX (occurrence: MX)
  Receive Date: 20140505
  Receipt Date: 20140507
  Transmission Date: 20141212
  Serious: Yes (Other)
  Sender: FDA-Public Use
  Company Number: MX-PFIZER INC-2014116500

PATIENT
  Age: 73 Year
  Sex: Female

DRUGS (3)
  1. AMIODARONE HCL [Suspect]
     Indication: ATRIAL FIBRILLATION
     Dosage: 200 MG, 3X/DAY
     Route: 065
  2. LOSARTAN [Concomitant]
     Dosage: 100 MG, 1X/DAY
  3. XARELTO [Concomitant]
     Dosage: 5 MG, 1X/DAY

REACTIONS (3)
  - Toxic optic neuropathy [Recovering/Resolving]
  - Optic disc haemorrhage [Recovering/Resolving]
  - Papilloedema [Recovered/Resolved]
